FAERS Safety Report 9396302 (Version 2)
Quarter: 2013Q4

REPORT INFORMATION
  Report Type: Spontaneous
  Country: GB (occurrence: GB)
  Receive Date: 20130711
  Receipt Date: 20131023
  Transmission Date: 20140711
  Serious: Yes (Life-Threatening, Other)
  Sender: FDA-Public Use
  Company Number: GB-WATSON-2013-10377

PATIENT
  Age: 33 Year
  Sex: Male
  Weight: 70 kg

DRUGS (4)
  1. AMITRIPTYLINE (UNKNOWN) [Suspect]
     Indication: DEPRESSION
     Dosage: DAILY, INITIALLY COMMENCED ON 50MG AT NIGHT, INCREASED OVER A SPACE OF 6 DAYS TO 150MG AT NIGHT
     Route: 048
     Dates: start: 20130503, end: 20130515
  2. QUETIAPINE (UNKNOWN) [Suspect]
     Indication: MAJOR DEPRESSION
     Dosage: DAILY, INITIALLY COMMENCED ON 50MG TWICE DAILY, INCREASED OVER 6 DAYS TO 100MG TWICE DAILY
     Route: 048
     Dates: start: 20130503
  3. CITALOPRAM [Concomitant]
     Indication: PRODUCT USED FOR UNKNOWN INDICATION
     Dosage: UNK
     Route: 065
  4. TEMAZEPAM [Concomitant]
     Indication: PRODUCT USED FOR UNKNOWN INDICATION
     Dosage: UNK
     Route: 065

REACTIONS (7)
  - Pulmonary embolism [Not Recovered/Not Resolved]
  - Deep vein thrombosis [Not Recovered/Not Resolved]
  - Chest pain [Unknown]
  - Bundle branch block right [Unknown]
  - Atelectasis [Not Recovered/Not Resolved]
  - Pain in extremity [Unknown]
  - Fibrin D dimer increased [Unknown]
